FAERS Safety Report 13105392 (Version 1)
Quarter: 2017Q1

REPORT INFORMATION
  Report Type: Spontaneous
  Country: SK (occurrence: SK)
  Receive Date: 20170111
  Receipt Date: 20170111
  Transmission Date: 20170428
  Serious: Yes (Other)
  Sender: FDA-Public Use
  Company Number: SK-GE HEALTHCARE MEDICAL DIAGNOSTICS-VISP-PR-1701S-0021

PATIENT
  Age: 53 Year
  Sex: Female
  Weight: 73 kg

DRUGS (2)
  1. VISIPAQUE [Suspect]
     Active Substance: IODIXANOL
     Indication: DIAGNOSTIC PROCEDURE
  2. VISIPAQUE [Suspect]
     Active Substance: IODIXANOL
     Indication: RECTOSIGMOID CANCER
     Route: 042
     Dates: start: 20161130, end: 20161130

REACTIONS (5)
  - Abdominal pain [Recovered/Resolved]
  - Vomiting [Recovered/Resolved]
  - Erythema [Recovered/Resolved]
  - Pulse absent [Recovered/Resolved]
  - Blood pressure immeasurable [Recovered/Resolved]

NARRATIVE: CASE EVENT DATE: 20161130
